FAERS Safety Report 16765125 (Version 1)
Quarter: 2019Q3

REPORT INFORMATION
  Report Type: Spontaneous
  Country: GB (occurrence: GB)
  Receive Date: 20190903
  Receipt Date: 20190903
  Transmission Date: 20191005
  Serious: Yes (Other)
  Sender: FDA-Public Use
  Company Number: GB-TEVA-2019-GB-1100218

PATIENT
  Age: 83 Year
  Sex: Female
  Weight: 120.65 kg

DRUGS (5)
  1. MILPHARM OMEPRAZOLE GASTRO-RESISTANT [Concomitant]
     Active Substance: OMEPRAZOLE
  2. AMIAS [Concomitant]
     Active Substance: CANDESARTAN CILEXETIL
  3. TEVA UK LEVOTHYROXINE [Interacting]
     Active Substance: LEVOTHYROXINE
     Indication: HYPOTHYROIDISM
     Dosage: 100 MCG
     Route: 048
  4. GAVISCON ADVANCE [Concomitant]
     Active Substance: POTASSIUM BICARBONATE\SODIUM ALGINATE
  5. WARFARIN SODIUM. [Suspect]
     Active Substance: WARFARIN SODIUM
     Route: 065

REACTIONS (5)
  - Palpitations [Recovered/Resolved]
  - Headache [Recovered/Resolved]
  - Product substitution issue [Unknown]
  - International normalised ratio fluctuation [Recovered/Resolved]
  - Drug interaction [Unknown]

NARRATIVE: CASE EVENT DATE: 20190105
